FAERS Safety Report 10877290 (Version 1)
Quarter: 2015Q1

REPORT INFORMATION
  Report Type: Spontaneous
  Country: NL (occurrence: NL)
  Receive Date: 20150302
  Receipt Date: 20150302
  Transmission Date: 20150721
  Serious: Yes (Hospitalization, Disabling, Other)
  Sender: FDA-Public Use
  Company Number: NL-TEVA-542510ISR

PATIENT
  Age: 55 Year
  Sex: Male
  Weight: 81 kg

DRUGS (4)
  1. ARCOXIA TABLET FILMOMHULD  90MG [Concomitant]
     Dosage: TWICE DAILY ONE PIECE
     Route: 048
     Dates: start: 20100919
  2. FOLIUMZUUR TABLET 5MG [Concomitant]
     Active Substance: FOLIC ACID
     Dosage: TWICE WEEKLY ONE PIECE
     Route: 048
     Dates: start: 20100929, end: 20150102
  3. NEXIUM CONTROL TABLET MSR 20MG [Concomitant]
     Dosage: ONCE DAILY ONE PIECE
     Route: 048
  4. METHOTREXATE (METHOTREXATE SODIUM) [Suspect]
     Active Substance: METHOTREXATE SODIUM
     Indication: RHEUMATOID ARTHRITIS
     Dosage: ONCE WEEKLY 8 PIECES
     Route: 048
     Dates: start: 20100929

REACTIONS (1)
  - Coronary artery occlusion [Recovered/Resolved]

NARRATIVE: CASE EVENT DATE: 20140119
